FAERS Safety Report 9524787 (Version 1)
Quarter: 2013Q1

REPORT INFORMATION
  Report Type: Spontaneous
  Country: US (occurrence: None)
  Receive Date: 20130305
  Receipt Date: 20130305
  Transmission Date: 20140127
  Serious: Yes (Hospitalization)
  Sender: FDA-Public Use
  Company Number: 163-21880-12023022

PATIENT
  Age: 80 Year
  Sex: Male

DRUGS (7)
  1. REVLIMID [Suspect]
     Indication: MYELODYSPLASTIC SYNDROME
     Route: 048
     Dates: start: 201106, end: 20120129
  2. SINEMET [Concomitant]
  3. FINASTERIDE [Concomitant]
  4. SEROQUEL (QUETIAPINE FUMARATE) [Concomitant]
  5. LODOSYN (CARBIDOPA) [Concomitant]
  6. PRAVACHOL (PRAVASTATIN SODIUM) [Concomitant]
  7. PREVACID (LANSOPRAZOLE) [Concomitant]

REACTIONS (1)
  - Pneumonia [None]
